FAERS Safety Report 6761107-7 (Version None)
Quarter: 2010Q2

REPORT INFORMATION
  Report Type: 
  Country: None (occurrence: None)
  Receive Date: 20100608
  Receipt Date: 20100525
  Transmission Date: 20101027
  Serious: Yes (Hospitalization, Other)
  Sender: FDA-Public Use
  Company Number: US-ELI_LILLY_AND_COMPANY-US201005007662

PATIENT
  Sex: Male

DRUGS (12)
  1. FORTEO [Suspect]
     Dosage: 20 UG, DAILY (1/D)
     Dates: start: 20091101
  2. ACIPHEX [Concomitant]
  3. VESICARE [Concomitant]
  4. NAMENDA [Concomitant]
  5. UROXATRAL [Concomitant]
  6. SINGULAIR [Concomitant]
  7. ASMANEX TWISTHALER [Concomitant]
  8. EXELON [Concomitant]
  9. LAMOTRIGINE [Concomitant]
  10. VITAMIN E [Concomitant]
  11. CALCIUM WITH VITAMIN D [Concomitant]
  12. MULTI-VITAMIN [Concomitant]

REACTIONS (3)
  - FALL [None]
  - SKIN CANCER [None]
  - SPINAL FRACTURE [None]
